FAERS Safety Report 4446894-5 (Version None)
Quarter: 2004Q3

REPORT INFORMATION
  Report Type: 
  Country: None (occurrence: None)
  Receive Date: 20040908
  Receipt Date: 20040827
  Transmission Date: 20050211
  Serious: Yes (Other)
  Sender: FDA-Public Use
  Company Number: M2004.1191

PATIENT
  Age: 54 Year
  Sex: Male

DRUGS (6)
  1. RIMACTANE [Suspect]
     Indication: TUBERCULOID LEPROSY
     Dosage: 600 MG QMO
  2. DAPSONE [Suspect]
     Indication: TUBERCULOID LEPROSY
     Dosage: 100 MG QD
  3. CLOFAZIMINE [Suspect]
     Indication: TUBERCULOID LEPROSY
     Dosage: 100 MG QD
  4. ZIDOVUDINE [Concomitant]
  5. LAMIVUDINE [Concomitant]
  6. ABACAVIR [Concomitant]

REACTIONS (4)
  - DISEASE PROGRESSION [None]
  - LEUKOCYTOCLASTIC VASCULITIS [None]
  - SKIN ULCER [None]
  - TUBERCULOID LEPROSY [None]
